FAERS Safety Report 5240771-8 (Version None)
Quarter: 2007Q1

REPORT INFORMATION
  Report Type: 
  Country: None (occurrence: None)
  Receive Date: 20061208
  Receipt Date: 20050805
  Transmission Date: 20070707
  Serious: Yes (Other)
  Sender: FDA-Public Use
  Company Number: 2005UW11576

PATIENT
  Age: 82 Year
  Sex: Male
  Weight: 86.182 kg

DRUGS (11)
  1. CRESTOR [Suspect]
     Indication: BLOOD CHOLESTEROL INCREASED
     Dosage: 10 MG DAILY PO
     Route: 048
  2. ALTACE [Concomitant]
  3. PROTONIX [Concomitant]
  4. ZETIA [Concomitant]
  5. TIAZAC [Concomitant]
  6. HYDROCHLOROTHIAZIDE [Concomitant]
  7. ATENOLOL [Concomitant]
  8. PLAVIX [Concomitant]
  9. ASPIRIN [Concomitant]
  10. KLOR-CON [Concomitant]
  11. ASTELIN [Concomitant]

REACTIONS (2)
  - HYPOAESTHESIA [None]
  - MYALGIA [None]
